FAERS Safety Report 7221003-8 (Version None)
Quarter: 2011Q1

REPORT INFORMATION
  Report Type: 
  Country: None (occurrence: None)
  Receive Date: 20110112
  Receipt Date: 20110110
  Transmission Date: 20110831
  Serious: Yes (Other)
  Sender: FDA-Public Use
  Company Number: US-BRISTOL-MYERS SQUIBB COMPANY-15477912

PATIENT
  Age: 71 Year
  Sex: Female

DRUGS (1)
  1. COUMADIN [Suspect]
     Dates: start: 20100401

REACTIONS (6)
  - GASTROINTESTINAL HAEMORRHAGE [None]
  - NIGHT SWEATS [None]
  - ABDOMINAL DISTENSION [None]
  - GASTRIC DISORDER [None]
  - NAUSEA [None]
  - WEIGHT DECREASED [None]
